FAERS Safety Report 8185793-2 (Version None)
Quarter: 2012Q1

REPORT INFORMATION
  Report Type: 
  Country: None (occurrence: None)
  Receive Date: 20120305
  Receipt Date: 20120222
  Transmission Date: 20120608
  Serious: Yes (Death, Hospitalization, Other)
  Sender: FDA-Public Use
  Company Number: PHEH2005US14203

PATIENT
  Sex: Female
  Weight: 98.866 kg

DRUGS (69)
  1. VICODIN [Concomitant]
  2. FERREX [Concomitant]
  3. FENTANYL [Concomitant]
  4. DARVOCET-N 50 [Concomitant]
  5. DECADRON [Concomitant]
  6. TRAMADOL HCL [Concomitant]
  7. LORTAB [Concomitant]
  8. OMEPRAZOLE [Concomitant]
  9. FLEXERIL [Concomitant]
     Dosage: 10 MG, Q8H
     Route: 048
  10. NEURONTIN [Concomitant]
     Dosage: 100 MG, TID
     Route: 048
  11. DULCOLAX [Concomitant]
     Dosage: 10 MG, UNK
     Route: 048
  12. PRILOSEC [Concomitant]
  13. THYROXIN [Concomitant]
  14. ALPRAZOLAM [Concomitant]
  15. AMBIEN [Concomitant]
     Dosage: 5 MG, QH
     Route: 048
     Dates: start: 20031007
  16. AVELOX [Concomitant]
     Dates: start: 20020130
  17. COLACE [Concomitant]
  18. FOSAMAX [Concomitant]
  19. LOVASTATIN [Concomitant]
  20. AREDIA [Suspect]
     Indication: METASTASES TO BONE
     Route: 042
  21. PHENERGAN [Concomitant]
     Dosage: 125 MG, Q6H
     Route: 042
     Dates: start: 20031006
  22. OXYCODONE HCL [Concomitant]
  23. PERIOSTAT [Concomitant]
  24. MULTIVITAMIN ^LAPPE^ [Concomitant]
  25. ASPIRIN [Concomitant]
     Dosage: 324 MG, QD
     Route: 048
  26. LACTULOSE [Concomitant]
     Dosage: 30 ML, UNK
     Route: 048
  27. LEVAQUIN [Concomitant]
  28. AMOXICILLIN [Concomitant]
  29. SENNA [Concomitant]
  30. CALCIUM CHLORIDE [Concomitant]
  31. BENADRYL [Concomitant]
     Dosage: 25 MG, Q6H
     Route: 048
  32. NITROSTAT [Concomitant]
     Dosage: 0.4 MG, UNK
     Route: 060
  33. ARTHROTEC [Concomitant]
  34. EFFEXOR [Concomitant]
     Indication: ANXIETY
     Dosage: 75 MG, QD
  35. STERAPRED [Concomitant]
     Dates: start: 20020802
  36. VITAMIN D [Concomitant]
  37. TRAZODONE HCL [Concomitant]
  38. NAPROXEN SODIUM [Concomitant]
  39. HYDROCHLOROTHIAZIDE [Concomitant]
  40. RADIATION THERAPY [Concomitant]
  41. CATAPRES [Concomitant]
     Dosage: 0.1 MG, Q8H
     Route: 048
  42. MENTHOL [Concomitant]
     Dosage: 1 DF, UNK
     Route: 048
  43. METOCLOPRAMIDE [Concomitant]
     Dosage: 10 MG, Q6H
     Route: 048
  44. CEFAZOLIN [Concomitant]
  45. DIOVAN [Suspect]
  46. URECHOLINE [Concomitant]
  47. PPD DISPOSABLE [Concomitant]
  48. ZOMETA [Suspect]
     Indication: METASTASES TO BONE
     Dosage: EVERY 6 MONTHS
     Route: 042
     Dates: start: 20030106
  49. FEMARA [Concomitant]
     Dates: start: 20060101
  50. PERCOCET [Concomitant]
     Dosage: UNK DF, Q4H 1 OR 2 TABLETS EVERY FOUR HOURS PRN
     Route: 048
     Dates: start: 20031006
  51. MORPHINE [Concomitant]
     Dosage: UNK UKN, PRN 1-2MG EVERY HOUR AS NEEDED
     Route: 042
  52. PROMETHAZINE [Concomitant]
  53. POTASSIUM CHLORIDE [Concomitant]
  54. OSCAL 500-D [Concomitant]
  55. FLUDROCORTISONE ACETATE [Concomitant]
  56. OXYCONTIN [Concomitant]
     Dosage: 10 MG, UNK
     Route: 048
  57. PROZAC [Concomitant]
  58. TAMOXIFEN CITRATE [Concomitant]
  59. HYDROCODONE BITARTRATE [Concomitant]
  60. ACETAMINOPHEN [Concomitant]
     Dosage: 650 MG, Q4H
     Route: 048
  61. AROMASIN [Concomitant]
  62. FLORINEF [Concomitant]
  63. MIRALAX [Concomitant]
     Dosage: UNK
  64. MILK OF MAGNESIA TAB [Concomitant]
     Dosage: 30 ML, UNK
     Route: 048
  65. MACRODANTIN [Concomitant]
     Dosage: 100 MG, Q12H
     Route: 048
  66. CIPRO [Concomitant]
     Dosage: 250 MG, Q12H
     Route: 048
  67. BACITRACIN [Concomitant]
     Dosage: 1 DF, BID
     Route: 061
  68. ATENOLOL [Concomitant]
  69. FUROSEMIDE [Concomitant]

REACTIONS (100)
  - TOOTH LOSS [None]
  - GINGIVITIS [None]
  - ABSCESS ORAL [None]
  - FIBROSIS [None]
  - PRIMARY SEQUESTRUM [None]
  - CHRONIC OBSTRUCTIVE PULMONARY DISEASE [None]
  - CATARACT [None]
  - FACET JOINT SYNDROME [None]
  - RIB FRACTURE [None]
  - NOCTURIA [None]
  - GASTRITIS [None]
  - ORTHOSIS USER [None]
  - DENTURE WEARER [None]
  - OSTEOMYELITIS [None]
  - BREATH ODOUR [None]
  - RENAL FAILURE CHRONIC [None]
  - CEREBROVASCULAR ACCIDENT [None]
  - ERYTHEMA [None]
  - ORAL MUCOSAL EXFOLIATION [None]
  - URINARY RETENTION [None]
  - SYNOVITIS [None]
  - DYSURIA [None]
  - CONTUSION [None]
  - RASH MACULO-PAPULAR [None]
  - ANXIETY [None]
  - CHEST PAIN [None]
  - INSOMNIA [None]
  - LACERATION [None]
  - LEUKOCYTOSIS [None]
  - TOOTH DISORDER [None]
  - HAEMANGIOMA OF LIVER [None]
  - HAEMATURIA [None]
  - CARDIOMEGALY [None]
  - TRANSIENT ISCHAEMIC ATTACK [None]
  - VAGINAL INFECTION [None]
  - ANAEMIA [None]
  - PAIN [None]
  - PYREXIA [None]
  - NEURODERMATITIS [None]
  - RASH MACULAR [None]
  - OSTEOARTHRITIS [None]
  - DEATH [None]
  - SPINAL COMPRESSION FRACTURE [None]
  - BACTERIAL INFECTION [None]
  - BONE DISORDER [None]
  - SYNCOPE [None]
  - HYDRONEPHROSIS [None]
  - HYPERTONIC BLADDER [None]
  - TROPONIN INCREASED [None]
  - PULMONARY OEDEMA [None]
  - RESPIRATORY DISORDER [None]
  - FALL [None]
  - WALKING AID USER [None]
  - MUSCLE SPASMS [None]
  - ACTINOMYCOSIS [None]
  - PULMONARY MASS [None]
  - GASTROINTESTINAL PAIN [None]
  - OSTEOPOROSIS [None]
  - SPINAL OSTEOARTHRITIS [None]
  - OSTEOPENIA [None]
  - ATELECTASIS [None]
  - BRAIN COMPRESSION [None]
  - CARDIAC ARREST [None]
  - CHRONIC SINUSITIS [None]
  - NASAL MUCOSAL DISORDER [None]
  - DYSPNOEA [None]
  - ORTHOSTATIC HYPOTENSION [None]
  - MUSCULAR WEAKNESS [None]
  - HAEMORRHOIDS [None]
  - BONE SCAN ABNORMAL [None]
  - NEURALGIA [None]
  - OSTEONECROSIS OF JAW [None]
  - FUNGAL INFECTION [None]
  - PSEUDOMONAS INFECTION [None]
  - GASTROINTESTINAL DISORDER [None]
  - MYELOPATHY [None]
  - CHOLELITHIASIS [None]
  - PLEURAL EFFUSION [None]
  - NEOPLASM MALIGNANT [None]
  - HYDROURETER [None]
  - ARTHRALGIA [None]
  - RASH PRURITIC [None]
  - INTERVERTEBRAL DISC PROTRUSION [None]
  - KYPHOSIS [None]
  - SPINAL CORD COMPRESSION [None]
  - PERONEAL NERVE PALSY [None]
  - SEPSIS [None]
  - PERIODONTITIS [None]
  - DENTAL CARIES [None]
  - ORAL INFECTION [None]
  - URINARY TRACT INFECTION ENTEROCOCCAL [None]
  - PROCEDURAL HYPERTENSION [None]
  - VENTRICULAR EXTRASYSTOLES [None]
  - BLADDER TRANSITIONAL CELL CARCINOMA [None]
  - EMBOLIC STROKE [None]
  - HEMIPLEGIA [None]
  - METAPLASIA [None]
  - JOINT SWELLING [None]
  - SINUSITIS [None]
  - TENDON INJURY [None]
